FAERS Safety Report 9156743 (Version 1)
Quarter: 2013Q1

REPORT INFORMATION
  Report Type: Spontaneous
  Country: US (occurrence: None)
  Receive Date: 20130308
  Receipt Date: 20130308
  Transmission Date: 20140127
  Serious: Yes (Hospitalization, Other)
  Sender: FDA-Public Use
  Company Number: None

PATIENT
  Age: 41 Year
  Sex: Female
  Weight: 43.09 kg

DRUGS (1)
  1. AZATHIOPRINE 50 MG TAB ROXANE LAB [Suspect]
     Indication: EXPOSURE VIA PARTNER
     Dosage: 50 MG TAB 3 1/2 DAILY ORAL {- BOYFRIEND TOOK. I DID NOT
     Route: 048
     Dates: start: 20120816

REACTIONS (3)
  - Exposure via partner [None]
  - Staphylococcal infection [None]
  - Furuncle [None]
